FAERS Safety Report 23821871 (Version 1)
Quarter: 2024Q2

REPORT INFORMATION
  Report Type: Spontaneous
  Country: US (occurrence: US)
  Receive Date: 20240506
  Receipt Date: 20240506
  Transmission Date: 20240715
  Serious: Yes (Other)
  Sender: FDA-Public Use
  Company Number: US-PFIZER INC-202400100827

PATIENT
  Age: 13 Year

DRUGS (4)
  1. RITLECITINIB [Suspect]
     Active Substance: RITLECITINIB
     Indication: Alopecia areata
     Dosage: 50 MG
  2. HYDROCORTISONE [Concomitant]
     Active Substance: HYDROCORTISONE
  3. FLORINEF ACETATE [Concomitant]
     Active Substance: FLUDROCORTISONE ACETATE
  4. LEVOTHYROXINE [Concomitant]
     Active Substance: LEVOTHYROXINE\LEVOTHYROXINE SODIUM

REACTIONS (1)
  - Thrombocytopenia [Unknown]
